FAERS Safety Report 4636301-1 (Version None)
Quarter: 2005Q2

REPORT INFORMATION
  Report Type: 
  Country: None (occurrence: None)
  Receive Date: 20050415
  Receipt Date: 20040726
  Transmission Date: 20051028
  Serious: No
  Sender: FDA-Public Use
  Company Number: US-BRISTOL-MYERS SQUIBB COMPANY-12653366

PATIENT
  Sex: Male

DRUGS (1)
  1. PARAPLATIN [Suspect]

REACTIONS (3)
  - BALANCE DISORDER [None]
  - DYSPHONIA [None]
  - VISUAL DISTURBANCE [None]
